FAERS Safety Report 14604121 (Version 1)
Quarter: 2018Q1

REPORT INFORMATION
  Report Type: Spontaneous
  Country: US (occurrence: US)
  Receive Date: 20180305
  Receipt Date: 20180305
  Transmission Date: 20180509
  Serious: Yes (Disabling, Other)
  Sender: FDA-Public Use
  Company Number: None

PATIENT
  Age: 51 Year
  Sex: Female
  Weight: 112.5 kg

DRUGS (2)
  1. BUPROPION HYDROCHLORIDE XL [Suspect]
     Active Substance: BUPROPION HYDROCHLORIDE
     Indication: DEPRESSION
     Dosage: ?          QUANTITY:1 TABLET(S);?
     Route: 048
  2. DEXILANT [Concomitant]
     Active Substance: DEXLANSOPRAZOLE

REACTIONS (10)
  - Gastrooesophageal reflux disease [None]
  - Hypovitaminosis [None]
  - Insurance issue [None]
  - Depression [None]
  - Malaise [None]
  - Drug ineffective [None]
  - Product substitution issue [None]
  - Mineral deficiency [None]
  - Product formulation issue [None]
  - Blood iron decreased [None]

NARRATIVE: CASE EVENT DATE: 20180304
